FAERS Safety Report 6085750-6 (Version None)
Quarter: 2009Q1

REPORT INFORMATION
  Report Type: 
  Country: None (occurrence: None)
  Receive Date: 20090220
  Receipt Date: 20090218
  Transmission Date: 20090719
  Serious: Yes (Death, Life-Threatening)
  Sender: FDA-Public Use
  Company Number: US-EISAI MEDICAL RESEARCH-E2020-03713-CLI-US

PATIENT
  Sex: Female
  Weight: 48 kg

DRUGS (2)
  1. DONEPEZIL HCL [Suspect]
     Indication: DISTURBANCE IN ATTENTION
     Route: 048
     Dates: start: 20080916, end: 20081002
  2. ROBITUSSIN [Concomitant]
     Indication: UPPER RESPIRATORY TRACT INFECTION
     Route: 048
     Dates: start: 20081113, end: 20081117

REACTIONS (2)
  - NEUTROPENIA [None]
  - SEPTIC SHOCK [None]
